FAERS Safety Report 18489188 (Version 1)
Quarter: 2020Q4

REPORT INFORMATION
  Report Type: Spontaneous
  Country: DE (occurrence: DE)
  Receive Date: 20201111
  Receipt Date: 20201111
  Transmission Date: 20210114
  Serious: Yes (Life-Threatening, Hospitalization, Other)
  Sender: FDA-Public Use
  Company Number: DE-JNJFOC-20201103154

PATIENT
  Age: 32 Year
  Sex: Female
  Weight: 80 kg

DRUGS (4)
  1. DULOXALTA [Suspect]
     Active Substance: DULOXETINE HYDROCHLORIDE
     Indication: PRODUCT USED FOR UNKNOWN INDICATION
     Dosage: MAX. 4800 MG, SINGLE DOSE
     Route: 048
     Dates: start: 20201018, end: 20201018
  2. HALOPERIDOL. [Suspect]
     Active Substance: HALOPERIDOL
     Indication: PRODUCT USED FOR UNKNOWN INDICATION
     Dosage: SINGLE DOSE
     Route: 048
     Dates: start: 20201018, end: 20201018
  3. ZUCLOPENTHIXOL [Suspect]
     Active Substance: ZUCLOPENTHIXOL
     Indication: PRODUCT USED FOR UNKNOWN INDICATION
     Dosage: SINGLE DOSE
     Route: 048
     Dates: start: 20201018, end: 20201018
  4. ARIPIPRAZOLE. [Suspect]
     Active Substance: ARIPIPRAZOLE
     Indication: PRODUCT USED FOR UNKNOWN INDICATION
     Dosage: MAX. 350 MG, SINGLE DOSE
     Route: 048
     Dates: start: 20201018, end: 20201018

REACTIONS (4)
  - Agitation [Recovered/Resolved]
  - Suicide attempt [Not Recovered/Not Resolved]
  - Overdose [Unknown]
  - Aggression [Recovered/Resolved]

NARRATIVE: CASE EVENT DATE: 20201018
